FAERS Safety Report 7714212-2 (Version None)
Quarter: 2011Q3

REPORT INFORMATION
  Report Type: 
  Country: None (occurrence: None)
  Receive Date: 20110829
  Receipt Date: 20110819
  Transmission Date: 20111222
  Serious: No
  Sender: FDA-Public Use
  Company Number: US-BIOGENIDEC-2011BI022371

PATIENT
  Sex: Female

DRUGS (3)
  1. AVONEX [Concomitant]
     Route: 030
  2. TYSABRI [Suspect]
     Indication: MULTIPLE SCLEROSIS
     Route: 042
     Dates: start: 20110512
  3. AVONEX [Concomitant]
     Indication: MULTIPLE SCLEROSIS
     Route: 030
     Dates: start: 20091001

REACTIONS (14)
  - GENITAL BURNING SENSATION [None]
  - PRURITUS [None]
  - ANAPHYLACTIC REACTION [None]
  - FLUSHING [None]
  - VOMITING [None]
  - MENTAL IMPAIRMENT [None]
  - NAUSEA [None]
  - LIP SWELLING [None]
  - RASH GENERALISED [None]
  - FATIGUE [None]
  - DYSARTHRIA [None]
  - HYPERSENSITIVITY [None]
  - SWOLLEN TONGUE [None]
  - GENERAL SYMPTOM [None]
